FAERS Safety Report 9324289 (Version 1)
Quarter: 2013Q2

REPORT INFORMATION
  Report Type: Spontaneous
  Country: FR (occurrence: FR)
  Receive Date: 20130603
  Receipt Date: 20130603
  Transmission Date: 20140414
  Serious: Yes (Death, Hospitalization)
  Sender: FDA-Public Use
  Company Number: PHHY2013FR055402

PATIENT
  Age: 64 Year
  Sex: Male

DRUGS (3)
  1. CICLOSPORIN [Suspect]
  2. MYCOPHENOLATE MOFETIL [Suspect]
  3. PREDNISONE [Suspect]

REACTIONS (15)
  - Multi-organ failure [Fatal]
  - Respiratory failure [Unknown]
  - Renal failure [Unknown]
  - Shock [Unknown]
  - Haemorrhage [Unknown]
  - Systemic candida [Unknown]
  - Corona virus infection [Unknown]
  - Acute respiratory distress syndrome [Unknown]
  - Diarrhoea [Unknown]
  - Pyrexia [Unknown]
  - Chills [Unknown]
  - Dyspnoea [Unknown]
  - Cough [Unknown]
  - Lung infiltration [Unknown]
  - Lung consolidation [Unknown]
